FAERS Safety Report 6043771-3 (Version None)
Quarter: 2009Q1

REPORT INFORMATION
  Report Type: 
  Country: None (occurrence: None)
  Receive Date: 20090120
  Receipt Date: 20090112
  Transmission Date: 20090719
  Serious: Yes (Hospitalization, Other)
  Sender: FDA-Public Use
  Company Number: PHHY2008FR32670

PATIENT
  Sex: Female
  Weight: 70 kg

DRUGS (8)
  1. EXELON [Suspect]
     Indication: DEMENTIA ALZHEIMER'S TYPE
     Dosage: 4.6 MG/ DAY
     Route: 062
     Dates: start: 20080901, end: 20081028
  2. PREVISCAN [Concomitant]
     Dosage: 1 DF, QD
     Route: 048
     Dates: start: 20080801
  3. TAHOR [Concomitant]
     Indication: HYPERTENSION
     Dosage: 10 MG, QD
  4. KARDEGIC [Concomitant]
  5. AMLOR [Concomitant]
     Dosage: 10 MG, QD
  6. RILMENIDINE [Concomitant]
     Dosage: 2 DF/DAY
  7. APROVEL [Concomitant]
     Dosage: 150 MG, QD
  8. LANTUS [Concomitant]
     Dosage: 18U/DAY

REACTIONS (13)
  - ANAEMIA [None]
  - BETA 2 MICROGLOBULIN INCREASED [None]
  - BLOOD LACTATE DEHYDROGENASE INCREASED [None]
  - DERMATITIS EXFOLIATIVE [None]
  - ECTROPION [None]
  - EOSINOPHIL COUNT INCREASED [None]
  - FOLATE DEFICIENCY [None]
  - INTERNATIONAL NORMALISED RATIO INCREASED [None]
  - NORMOCHROMIC NORMOCYTIC ANAEMIA [None]
  - RASH [None]
  - RENAL FAILURE ACUTE [None]
  - SKIN EXFOLIATION [None]
  - WRONG TECHNIQUE IN DRUG USAGE PROCESS [None]
